FAERS Safety Report 6045292-0 (Version None)
Quarter: 2009Q1

REPORT INFORMATION
  Report Type: 
  Country: None (occurrence: None)
  Receive Date: 20090121
  Receipt Date: 20090113
  Transmission Date: 20090719
  Serious: Yes (Hospitalization, Other)
  Sender: FDA-Public Use
  Company Number: PHBS2009TR00510

PATIENT
  Age: 28 Year
  Sex: Female

DRUGS (3)
  1. CYCLOSPORINE [Suspect]
     Indication: RENAL TRANSPLANT
  2. MYCOPHENOLATE MOFETIL [Concomitant]
     Indication: RENAL TRANSPLANT
  3. PREDNISONE [Concomitant]
     Indication: RENAL TRANSPLANT

REACTIONS (9)
  - BLINDNESS [None]
  - BLINDNESS UNILATERAL [None]
  - BLOOD HOMOCYSTEINE INCREASED [None]
  - PALLOR [None]
  - PAPILLOEDEMA [None]
  - RETINAL HAEMORRHAGE [None]
  - RETINAL OEDEMA [None]
  - RETINAL VASCULAR DISORDER [None]
  - RETINAL VEIN THROMBOSIS [None]
